FAERS Safety Report 5396336-0 (Version None)
Quarter: 2007Q3

REPORT INFORMATION
  Report Type: 
  Country: None (occurrence: None)
  Receive Date: 20070725
  Receipt Date: 20070719
  Transmission Date: 20080115
  Serious: Yes (Hospitalization)
  Sender: FDA-Public Use
  Company Number: US-BAYER-200711384BWH

PATIENT
  Age: 32 Year
  Sex: Female
  Weight: 57 kg

DRUGS (4)
  1. AVELOX [Suspect]
     Indication: DRUG USE FOR UNKNOWN INDICATION
     Dosage: TOTAL DAILY DOSE: 200 MG  UNIT DOSE: 400 MG
     Route: 048
     Dates: start: 20070423
  2. AVELOX [Suspect]
     Dosage: TOTAL DAILY DOSE: 200 MG  UNIT DOSE: 400 MG
     Route: 048
     Dates: start: 20070424
  3. ORAL STEROIDS (NOS) [Suspect]
     Indication: SINUSITIS
  4. ANTIBIOTIC (NOS) [Suspect]

REACTIONS (7)
  - ANXIETY [None]
  - FATIGUE [None]
  - MUSCLE SPASMS [None]
  - NEUROPATHY [None]
  - PAIN [None]
  - PALPITATIONS [None]
  - TENDONITIS [None]
